FAERS Safety Report 9468176 (Version 2)
Quarter: 2013Q4

REPORT INFORMATION
  Report Type: Spontaneous
  Country: IT (occurrence: IT)
  Receive Date: 20130821
  Receipt Date: 20131009
  Transmission Date: 20140711
  Serious: Yes (Hospitalization)
  Sender: FDA-Public Use
  Company Number: IT-TEVA-425658ISR

PATIENT
  Age: 53 Year
  Sex: Female
  Weight: 115 kg

DRUGS (4)
  1. GEMCITABINA [Suspect]
     Indication: OVARIAN CANCER
     Dosage: 1800 MG/M2 DAILY; 1800 MG/M2 CYCLICAL; CONCENTRATE FOR SOLUTION FOR INTRAVENOUS INFUSION
     Route: 042
     Dates: start: 20130301, end: 20130701
  2. PARACETAMOLO/CODEINA [Suspect]
     Dosage: 1 DOSAGE FORMS DAILY;
     Route: 042
     Dates: start: 20130101, end: 20130301
  3. OMEPRAZOLO [Concomitant]
  4. ENOXAPARINA [Concomitant]

REACTIONS (1)
  - Hepatitis cholestatic [Recovered/Resolved with Sequelae]
